FAERS Safety Report 6073425-9 (Version None)
Quarter: 2009Q1

REPORT INFORMATION
  Report Type: 
  Country: None (occurrence: None)
  Receive Date: 20090211
  Receipt Date: 20090130
  Transmission Date: 20090719
  Serious: Yes (Hospitalization)
  Sender: FDA-Public Use
  Company Number: GB-WYE-H07964709

PATIENT

DRUGS (2)
  1. IBUPROFEN TABLETS [Suspect]
     Indication: DRUG USE FOR UNKNOWN INDICATION
     Dosage: UNKNOWN
     Route: 048
  2. GARLIC [Interacting]
     Indication: DRUG USE FOR UNKNOWN INDICATION
     Dosage: UNKNOWN DOSE TAKEN REGULARLY
     Route: 048

REACTIONS (3)
  - BLEEDING TIME PROLONGED [None]
  - DRUG INTERACTION [None]
  - HAEMORRHAGE INTRACRANIAL [None]
